FAERS Safety Report 6236099-X (Version None)
Quarter: 2009Q2

REPORT INFORMATION
  Report Type: 
  Country: None (occurrence: None)
  Receive Date: 20090619
  Receipt Date: 20090615
  Transmission Date: 20091009
  Serious: Yes (Death, Other)
  Sender: FDA-Public Use
  Company Number: FR-ELI_LILLY_AND_COMPANY-FR200906003209

PATIENT
  Sex: Male

DRUGS (9)
  1. GEMZAR [Suspect]
     Indication: PANCREATIC CARCINOMA
     Dosage: UNK, UNK
     Route: 042
     Dates: end: 20090225
  2. FLUOROURACIL [Concomitant]
     Indication: PANCREATIC CARCINOMA
     Dosage: 1200 MG/M2, UNK
     Route: 042
     Dates: start: 20090310, end: 20090311
  3. OXALIPLATIN [Concomitant]
     Indication: PANCREATIC CARCINOMA
     Dosage: 85 MG/M2, UNK
     Route: 042
     Dates: start: 20090309, end: 20090309
  4. AVLOCARDYL [Concomitant]
  5. CRESTOR [Concomitant]
  6. KARDEGIC [Concomitant]
     Indication: PROPHYLAXIS
  7. EUPANTOL [Concomitant]
  8. LANTUS [Concomitant]
  9. INNOHEP [Concomitant]
     Indication: PROPHYLAXIS
     Dosage: 14000 IU, DAILY (1/D)

REACTIONS (5)
  - ANOSOGNOSIA [None]
  - APHASIA [None]
  - CEREBROVASCULAR ACCIDENT [None]
  - COMA [None]
  - HEMIPLEGIA [None]
